FAERS Safety Report 7374816-6 (Version None)
Quarter: 2011Q1

REPORT INFORMATION
  Report Type: 
  Country: None (occurrence: None)
  Receive Date: 20110325
  Receipt Date: 20101223
  Transmission Date: 20110831
  Serious: No
  Sender: FDA-Public Use
  Company Number: US-MYLANLABS-2010S1023687

PATIENT
  Age: 47 Year
  Sex: Male
  Weight: 99.79 kg

DRUGS (5)
  1. FENTANYL-100 [Suspect]
     Indication: PAIN
     Dosage: CHANGED Q48H
     Route: 062
     Dates: start: 20101001
  2. LEXAPRO [Concomitant]
     Indication: DEPRESSION
  3. OXYCODONE [Concomitant]
  4. LIPITOR [Concomitant]
     Indication: BLOOD CHOLESTEROL
  5. NEURONTIN [Concomitant]
     Indication: NEURALGIA

REACTIONS (3)
  - DRUG INEFFECTIVE [None]
  - PAIN [None]
  - DRUG WITHDRAWAL SYNDROME [None]
